FAERS Safety Report 16160369 (Version 1)
Quarter: 2019Q2

REPORT INFORMATION
  Report Type: Spontaneous
  Country: US (occurrence: US)
  Receive Date: 20190404
  Receipt Date: 20190404
  Transmission Date: 20190711
  Serious: Yes (Other)
  Sender: FDA-Public Use
  Company Number: US-MYLANLABS-2019M1028252

PATIENT
  Sex: Female
  Weight: 59 kg

DRUGS (1)
  1. CIMETIDINE TABLETS, USP [Suspect]
     Active Substance: CIMETIDINE
     Indication: DUODENAL ULCER
     Dosage: 1
     Route: 048

REACTIONS (1)
  - Therapeutic product effect decreased [Not Recovered/Not Resolved]
